FAERS Safety Report 25429195 (Version 2)
Quarter: 2025Q2

REPORT INFORMATION
  Report Type: Spontaneous
  Country: US (occurrence: US)
  Receive Date: 20250612
  Receipt Date: 20250630
  Transmission Date: 20250717
  Serious: No
  Sender: Unknown Manufacturer
  Company Number: US-KINIKSA PHARMACEUTICALS LTD.-2025KPU001577

PATIENT
  Age: 45 Year
  Sex: Female

DRUGS (2)
  1. ARCALYST [Suspect]
     Active Substance: RILONACEPT
     Indication: Pericarditis
     Dosage: 160 MILLIGRAM, QW
     Route: 058
     Dates: start: 20250312
  2. ARCALYST [Suspect]
     Active Substance: RILONACEPT
     Indication: Pericardial disease

REACTIONS (6)
  - Cystitis [Recovered/Resolved]
  - Pericarditis [Unknown]
  - Loss of personal independence in daily activities [Unknown]
  - Product complaint [Unknown]
  - Product preparation issue [Unknown]
  - Product dose omission issue [Recovered/Resolved]

NARRATIVE: CASE EVENT DATE: 20250501
